FAERS Safety Report 23182039 (Version 2)
Quarter: 2023Q4

REPORT INFORMATION
  Report Type: Spontaneous
  Country: US (occurrence: None)
  Receive Date: 20231114
  Receipt Date: 20231120
  Transmission Date: 20240110
  Serious: Yes (Other)
  Sender: FDA-Public Use
  Company Number: US-ROCHE-3452397

PATIENT
  Age: 61 Year
  Sex: Female
  Weight: 45.854 kg

DRUGS (2)
  1. OCREVUS [Suspect]
     Active Substance: OCRELIZUMAB
     Indication: Multiple sclerosis
     Dosage: LAST DOSE /JAN/2023
     Route: 042
  2. OCREVUS [Suspect]
     Active Substance: OCRELIZUMAB
     Dosage: SECOND DOSE ADMINISTERED 13/JUL/2022
     Route: 065
     Dates: start: 20220629

REACTIONS (6)
  - Multiple sclerosis relapse [Not Recovered/Not Resolved]
  - Procedural complication [Unknown]
  - Meniscus injury [Unknown]
  - Malaise [Unknown]
  - Vertigo positional [Unknown]
  - Amnesia [Unknown]

NARRATIVE: CASE EVENT DATE: 20221201
